FAERS Safety Report 19219363 (Version 4)
Quarter: 2022Q3

REPORT INFORMATION
  Report Type: Report from Study
  Country: CA (occurrence: CA)
  Receive Date: 20210506
  Receipt Date: 20220804
  Transmission Date: 20221026
  Serious: Yes (Other)
  Sender: FDA-Public Use
  Company Number: CA-JNJFOC-20210501389

PATIENT
  Age: 27 Year
  Sex: Male
  Weight: 81.8 kg

DRUGS (1)
  1. REMICADE [Suspect]
     Active Substance: INFLIXIMAB
     Indication: Colitis ulcerative
     Dosage: RENEWAL OF DOSE IN OCT-2019 WITH 1200 MG 1 EVERY 4 WEEKS
     Route: 041
     Dates: start: 20170501

REACTIONS (5)
  - Staphylococcal infection [Recovered/Resolved]
  - Weight decreased [Unknown]
  - Inappropriate schedule of product administration [Unknown]
  - Off label use [Unknown]
  - Incorrect drug administration rate [Unknown]

NARRATIVE: CASE EVENT DATE: 20170501
